FAERS Safety Report 6570210-6 (Version None)
Quarter: 2010Q1

REPORT INFORMATION
  Report Type: 
  Country: None (occurrence: None)
  Receive Date: 20100202
  Receipt Date: 20100202
  Transmission Date: 20100710
  Serious: Yes (Hospitalization, Other)
  Sender: FDA-Public Use
  Company Number: None

PATIENT
  Sex: Male
  Weight: 74.8435 kg

DRUGS (1)
  1. MINOCYCLINE HCL [Suspect]
     Indication: ACNE
     Dosage: 100MG DAILY PO
     Route: 048
     Dates: start: 20091202

REACTIONS (8)
  - ANTISOCIAL PERSONALITY DISORDER [None]
  - ASTHENIA [None]
  - DISTURBANCE IN ATTENTION [None]
  - DIZZINESS [None]
  - HYPERACUSIS [None]
  - INSOMNIA [None]
  - MAJOR DEPRESSION [None]
  - PHOTOPHOBIA [None]
